FAERS Safety Report 10624631 (Version 1)
Quarter: 2014Q4

REPORT INFORMATION
  Report Type: Spontaneous
  Country: ES (occurrence: ES)
  Receive Date: 20141203
  Receipt Date: 20141203
  Transmission Date: 20150529
  Serious: Yes (Other)
  Sender: FDA-Public Use
  Company Number: PHHY2014ES154945

PATIENT
  Age: 71 Year
  Sex: Male

DRUGS (1)
  1. AMOXICILLIN. [Suspect]
     Active Substance: AMOXICILLIN
     Indication: PRODUCT USED FOR UNKNOWN INDICATION
     Route: 065

REACTIONS (9)
  - Epigastric discomfort [Recovered/Resolved]
  - Electrocardiogram ST segment depression [Recovered/Resolved]
  - Faecal incontinence [Recovered/Resolved]
  - Discomfort [Recovered/Resolved]
  - Kounis syndrome [Unknown]
  - Dizziness [Recovered/Resolved]
  - Pruritus generalised [Recovered/Resolved]
  - Papule [Recovered/Resolved]
  - Hypotension [Recovered/Resolved]
